FAERS Safety Report 4837912-0 (Version None)
Quarter: 2005Q4

REPORT INFORMATION
  Report Type: 
  Country: None (occurrence: None)
  Receive Date: 20051123
  Receipt Date: 20051123
  Transmission Date: 20060501
  Serious: Yes (Other)
  Sender: FDA-Public Use
  Company Number: None

PATIENT
  Age: 64 Year
  Sex: Male
  Weight: 117.9352 kg

DRUGS (1)
  1. CELEBREX [Suspect]
     Dosage: 200 MG ONCE DAILY
     Dates: start: 19990101, end: 19990528

REACTIONS (3)
  - CORONARY ARTERY OCCLUSION [None]
  - HYPERTENSION [None]
  - MYOCARDIAL INFARCTION [None]
